FAERS Safety Report 5965022-8 (Version None)
Quarter: 2008Q4

REPORT INFORMATION
  Report Type: 
  Country: None (occurrence: None)
  Receive Date: 20081124
  Receipt Date: 20081124
  Transmission Date: 20090506
  Serious: Yes (Other)
  Sender: FDA-Public Use
  Company Number: None

PATIENT
  Age: 71 Year
  Sex: Male
  Weight: 74.8435 kg

DRUGS (2)
  1. CYCLOBENZAPRINE HCL [Suspect]
     Indication: MUSCLE RELAXANT THERAPY
     Dosage: 1 TABLET THREE TIMES DAILY PO
     Route: 048
     Dates: start: 20081105, end: 20081111
  2. CYCLOBENZAPRINE HCL [Suspect]
     Indication: SCIATICA
     Dosage: 1 TABLET THREE TIMES DAILY PO
     Route: 048
     Dates: start: 20081105, end: 20081111

REACTIONS (3)
  - ANURIA [None]
  - CONSTIPATION [None]
  - PAIN [None]
